FAERS Safety Report 5581589-6 (Version None)
Quarter: 2008Q1

REPORT INFORMATION
  Report Type: 
  Country: None (occurrence: None)
  Receive Date: 20080104
  Receipt Date: 20071220
  Transmission Date: 20080703
  Serious: Yes (Hospitalization)
  Sender: FDA-Public Use
  Company Number: GB-ELI_LILLY_AND_COMPANY-GB200708005471

PATIENT
  Sex: Female
  Weight: 49.751 kg

DRUGS (2)
  1. OLANZAPINE [Suspect]
     Indication: PSYCHOTIC DISORDER
     Dosage: 20 MG, DAILY (1/D)
     Route: 048
     Dates: start: 20070530, end: 20070813
  2. SIMVASTATIN [Concomitant]
     Dates: end: 20070701

REACTIONS (3)
  - HOSPITALISATION [None]
  - IRON DEFICIENCY ANAEMIA [None]
  - NEUTROPENIA [None]
